FAERS Safety Report 8315187-8 (Version None)
Quarter: 2012Q2

REPORT INFORMATION
  Report Type: 
  Country: None (occurrence: None)
  Receive Date: 20120426
  Receipt Date: 20120417
  Transmission Date: 20120825
  Serious: Yes (Hospitalization)
  Sender: FDA-Public Use
  Company Number: DE-GLAXOSMITHKLINE-B0796885A

PATIENT
  Sex: Female
  Weight: 66 kg

DRUGS (8)
  1. LERCANIDIPINE HYDROCHLORIDE [Concomitant]
     Dates: start: 20080101
  2. OMEPRAZOLE [Concomitant]
     Dosage: 40MG PER DAY
     Dates: start: 20120307
  3. NAPHAZOLINE HYDROCHLORIDE [Concomitant]
     Dates: start: 20120404
  4. DOXORUBICIN HCL [Suspect]
     Indication: BREAST CANCER METASTATIC
     Dosage: 34MG WEEKLY
     Route: 042
     Dates: start: 20120228
  5. LAPATINIB [Suspect]
     Indication: BREAST CANCER METASTATIC
     Dosage: 750MG PER DAY
     Route: 065
     Dates: start: 20120228
  6. PACLITAXEL [Suspect]
     Indication: BREAST CANCER METASTATIC
     Dosage: 132MG WEEKLY
     Route: 042
     Dates: start: 20120228
  7. TRASTUZUMAB [Suspect]
     Indication: BREAST CANCER
     Dosage: 390MG EVERY 3 WEEKS
     Route: 042
     Dates: start: 20120228
  8. RAMIPRIL [Concomitant]
     Dates: start: 20080101

REACTIONS (1)
  - PYREXIA [None]
